FAERS Safety Report 8394699-5 (Version None)
Quarter: 2012Q2

REPORT INFORMATION
  Report Type: 
  Country: None (occurrence: None)
  Receive Date: 20120530
  Receipt Date: 20120524
  Transmission Date: 20120825
  Serious: Yes (Hospitalization)
  Sender: FDA-Public Use
  Company Number: US-PFIZER INC-2011173623

PATIENT
  Sex: Female

DRUGS (1)
  1. RELPAX [Suspect]
     Dosage: 40 MG, UNK
     Route: 048

REACTIONS (3)
  - KIDNEY INFECTION [None]
  - MIGRAINE [None]
  - NEPHROLITHIASIS [None]
